FAERS Safety Report 10978389 (Version 6)
Quarter: 2018Q3

REPORT INFORMATION
  Report Type: Report from Study
  Country: US (occurrence: US)
  Receive Date: 20150402
  Receipt Date: 20180731
  Transmission Date: 20181010
  Serious: Yes (Other)
  Sender: FDA-Public Use
  Company Number: US-SA-2015SA040134

PATIENT
  Age: 52 Year
  Sex: Female

DRUGS (6)
  1. TERIFLUNOMIDE [Suspect]
     Active Substance: TERIFLUNOMIDE
     Dosage: 14 QD
     Route: 048
     Dates: start: 20150404, end: 20160521
  2. TERIFLUNOMIDE [Suspect]
     Active Substance: TERIFLUNOMIDE
     Dosage: 14 QD
     Route: 048
  3. TERIFLUNOMIDE [Suspect]
     Active Substance: TERIFLUNOMIDE
     Dosage: 14 MG,QD
     Route: 048
  4. TERIFLUNOMIDE [Suspect]
     Active Substance: TERIFLUNOMIDE
     Dosage: 14 MG,QD
     Route: 048
     Dates: end: 201705
  5. TERIFLUNOMIDE [Suspect]
     Active Substance: TERIFLUNOMIDE
     Indication: MULTIPLE SCLEROSIS
     Dosage: 14 MG,QD
     Route: 048
     Dates: start: 201304, end: 201307
  6. TERIFLUNOMIDE [Suspect]
     Active Substance: TERIFLUNOMIDE
     Dosage: 14 UNK
     Route: 048
     Dates: start: 20130618, end: 20130816

REACTIONS (19)
  - Road traffic accident [Unknown]
  - Nuclear magnetic resonance imaging abnormal [Unknown]
  - Chest discomfort [Unknown]
  - Multiple sclerosis relapse [Not Recovered/Not Resolved]
  - Aphonia [Unknown]
  - Spinal column stenosis [Unknown]
  - Temperature intolerance [Unknown]
  - Pain in extremity [Unknown]
  - Epilepsy [Unknown]
  - Cough [Unknown]
  - Muscular weakness [Recovering/Resolving]
  - Nasopharyngitis [Unknown]
  - Upper respiratory tract infection [Unknown]
  - Band sensation [Unknown]
  - Drug dose omission [Unknown]
  - Renal disorder [Unknown]
  - Muscle spasms [Unknown]
  - Stress [Not Recovered/Not Resolved]
  - Chest pain [Unknown]

NARRATIVE: CASE EVENT DATE: 2015
